FAERS Safety Report 25529108 (Version 1)
Quarter: 2025Q3

REPORT INFORMATION
  Report Type: Spontaneous
  Country: IN (occurrence: IN)
  Receive Date: 20250708
  Receipt Date: 20250708
  Transmission Date: 20251021
  Serious: Yes (Other)
  Sender: MERCK SHARP & DOHME LLC
  Company Number: IN-BAYER-2025A088711

PATIENT
  Age: 46 Year
  Sex: Female

DRUGS (1)
  1. VERICIGUAT [Suspect]
     Active Substance: VERICIGUAT

REACTIONS (1)
  - Syncope [Not Recovered/Not Resolved]

NARRATIVE: CASE EVENT DATE: 20250703
